FAERS Safety Report 14583199 (Version 1)
Quarter: 2018Q1

REPORT INFORMATION
  Report Type: Spontaneous
  Country: HK (occurrence: HK)
  Receive Date: 20180228
  Receipt Date: 20180228
  Transmission Date: 20180509
  Serious: Yes (Other)
  Sender: FDA-Public Use
  Company Number: HK-BAYER-2018-005513

PATIENT
  Age: 82 Year
  Sex: Male
  Weight: 43 kg

DRUGS (4)
  1. XOFIGO [Suspect]
     Active Substance: RADIUM RA-223 DICHLORIDE
     Indication: HORMONE-REFRACTORY PROSTATE CANCER
     Dosage: 55 KBQ/KG
     Dates: start: 20180103, end: 20180103
  2. DENOSUMAB [Concomitant]
     Active Substance: DENOSUMAB
  3. XOFIGO [Suspect]
     Active Substance: RADIUM RA-223 DICHLORIDE
     Indication: HORMONE-REFRACTORY PROSTATE CANCER
     Dosage: 55 KBQ/KG
     Dates: start: 20171107, end: 20171107
  4. XOFIGO [Suspect]
     Active Substance: RADIUM RA-223 DICHLORIDE
     Indication: METASTASIS
     Dosage: 55 KBQ/KG
     Dates: start: 20171205, end: 20171205

REACTIONS (2)
  - Bone pain [None]
  - Anaemia [None]

NARRATIVE: CASE EVENT DATE: 20180102
